FAERS Safety Report 6405108-7 (Version None)
Quarter: 2009Q4

REPORT INFORMATION
  Report Type: 
  Country: None (occurrence: None)
  Receive Date: 20091019
  Receipt Date: 20091008
  Transmission Date: 20100525
  Serious: Yes (Other)
  Sender: FDA-Public Use
  Company Number: GB-ROCHE-661765

PATIENT
  Sex: Male

DRUGS (2)
  1. TAMIFLU [Suspect]
     Route: 065
  2. EPILIM [Concomitant]
     Indication: EPILEPSY
     Dosage: REPORTED AS EPILUM

REACTIONS (2)
  - CONVULSION [None]
  - PYREXIA [None]
